FAERS Safety Report 15949667 (Version 1)
Quarter: 2019Q1

REPORT INFORMATION
  Report Type: Other
  Country: PT (occurrence: PT)
  Receive Date: 20190212
  Receipt Date: 20190212
  Transmission Date: 20190417
  Serious: Yes (Life-Threatening, Other)
  Sender: FDA-Public Use
  Company Number: PT-ASPEN-GLO2019PT001088

PATIENT
  Age: 41 Year
  Sex: Male

DRUGS (6)
  1. WATER FOR INJECTIONS [Suspect]
     Active Substance: WATER
     Indication: URETHRAL REPAIR
     Route: 065
  2. FENTANILO [Suspect]
     Active Substance: FENTANYL
     Indication: URETHRAL REPAIR
     Dosage: UNK
     Route: 065
  3. BROMETO DE ROCURONIO KABI (ROCURONIUM BROMIDE) (10 MILLIGRAM/MILLILITERS) (ROCURONIUM BROMIDE) [Suspect]
     Active Substance: ROCURONIUM BROMIDE
     Indication: URETHRAL REPAIR
     Route: 065
  4. DEXAMETHASONE. [Suspect]
     Active Substance: DEXAMETHASONE
     Indication: URETHRAL REPAIR
     Route: 065
  5. PROPOFOL-LIPURO [Suspect]
     Active Substance: PROPOFOL
     Indication: URETHRAL REPAIR
     Dosage: UNK
     Route: 065
  6. CEFTRIAXONA [Suspect]
     Active Substance: CEFTRIAXONE
     Indication: URETHRAL REPAIR
     Route: 065

REACTIONS (4)
  - Oxygen saturation decreased [Recovered/Resolved]
  - Tachycardia [Recovered/Resolved]
  - Anaphylactic shock [Recovered/Resolved]
  - Hypotension [Recovered/Resolved]

NARRATIVE: CASE EVENT DATE: 20190121
